FAERS Safety Report 17354348 (Version 1)
Quarter: 2020Q1

REPORT INFORMATION
  Report Type: Spontaneous
  Country: US (occurrence: US)
  Receive Date: 20200131
  Receipt Date: 20200131
  Transmission Date: 20200409
  Serious: Yes (Hospitalization, Other)
  Sender: FDA-Public Use
  Company Number: US-QUAGEN PHARMA LLC-2020QUALIT00016

PATIENT
  Age: 38 Year
  Sex: Female

DRUGS (13)
  1. AMITRIPTYLINE [Suspect]
     Active Substance: AMITRIPTYLINE
  2. GLUCAGON. [Interacting]
     Active Substance: GLUCAGON
  3. SODIUM BICARBONATE. [Interacting]
     Active Substance: SODIUM BICARBONATE
  4. PROMETHAZINE HYDROCHLORIDE TABLETS, 12.5 MG [Suspect]
     Active Substance: PROMETHAZINE HYDROCHLORIDE
  5. CYPROHEPTADINE. [Suspect]
     Active Substance: CYPROHEPTADINE
  6. MONTELUKAST [Suspect]
     Active Substance: MONTELUKAST SODIUM
  7. CLONAZEPAM. [Suspect]
     Active Substance: CLONAZEPAM
  8. INSULIN [Interacting]
     Active Substance: INSULIN NOS
  9. AMLODIPINE [Suspect]
     Active Substance: AMLODIPINE BESYLATE
  10. EPINEPHRINE. [Interacting]
     Active Substance: EPINEPHRINE
  11. NALOXONE [Interacting]
     Active Substance: NALOXONE
  12. ATROPINE. [Interacting]
     Active Substance: ATROPINE
  13. CHARCOAL [Interacting]
     Active Substance: ACTIVATED CHARCOAL

REACTIONS (7)
  - Cardiac arrest [Unknown]
  - Shock [Unknown]
  - Overdose [None]
  - Intestinal ischaemia [Unknown]
  - Respiratory failure [Unknown]
  - Cardiogenic shock [Unknown]
  - Mental status changes [Recovered/Resolved]
